FAERS Safety Report 24282713 (Version 1)
Quarter: 2024Q3

REPORT INFORMATION
  Report Type: Spontaneous
  Country: US (occurrence: None)
  Receive Date: 20240902
  Receipt Date: 20240902
  Transmission Date: 20241016
  Serious: Yes (Disabling, Other)
  Sender: Public
  Company Number: None

PATIENT
  Age: 67 Year
  Sex: Female
  Weight: 110.25 kg

DRUGS (8)
  1. TYLENOL EXTRA STRENGTH [Suspect]
     Active Substance: ACETAMINOPHEN
     Indication: Pain
     Dosage: 2 TABLETS AS NEEDED ORAL
     Route: 048
     Dates: start: 20240902, end: 20240902
  2. HYDROCHLOROTHIAZIDE\LISINOPRIL [Concomitant]
     Active Substance: HYDROCHLOROTHIAZIDE\LISINOPRIL
  3. armor thyroid [Concomitant]
  4. POTASSIUM [Concomitant]
     Active Substance: POTASSIUM
  5. methylated multivitamin [Concomitant]
  6. TYLENOL EXTRA STRENGTH [Concomitant]
     Active Substance: ACETAMINOPHEN
  7. PROGESTERONE [Concomitant]
     Active Substance: PROGESTERONE
  8. ALEVE [Concomitant]
     Active Substance: NAPROXEN SODIUM

REACTIONS (4)
  - Pain [None]
  - Pruritus [None]
  - Product formulation issue [None]
  - Drug hypersensitivity [None]

NARRATIVE: CASE EVENT DATE: 20240902
